FAERS Safety Report 15029493 (Version 2)
Quarter: 2018Q3

REPORT INFORMATION
  Report Type: Spontaneous
  Country: US (occurrence: US)
  Receive Date: 20180619
  Receipt Date: 20180802
  Transmission Date: 20181010
  Serious: Yes (Other)
  Sender: FDA-Public Use
  Company Number: US-BAYER-2018-115479

PATIENT
  Age: 35 Year
  Sex: Female

DRUGS (1)
  1. KYLEENA [Suspect]
     Active Substance: LEVONORGESTREL
     Indication: CONTRACEPTION
     Dosage: 17 MCG/24HR, CONT
     Route: 015
     Dates: start: 20170623, end: 20171218

REACTIONS (12)
  - Genital haemorrhage [Recovered/Resolved]
  - Skin disorder [Not Recovered/Not Resolved]
  - Fungal infection [Recovered/Resolved]
  - Menstruation irregular [Not Recovered/Not Resolved]
  - Vaginal infection [Recovered/Resolved]
  - Abdominal pain lower [Not Recovered/Not Resolved]
  - Hypoaesthesia [None]
  - Dry skin [Not Recovered/Not Resolved]
  - Hormone level abnormal [None]
  - Skin atrophy [Not Recovered/Not Resolved]
  - Lip discolouration [Not Recovered/Not Resolved]
  - Rash macular [Not Recovered/Not Resolved]

NARRATIVE: CASE EVENT DATE: 20170623
